FAERS Safety Report 5514501-6 (Version None)
Quarter: 2007Q4

REPORT INFORMATION
  Report Type: 
  Country: None (occurrence: None)
  Receive Date: 20071113
  Receipt Date: 20071113
  Transmission Date: 20080405
  Serious: Yes (Hospitalization)
  Sender: FDA-Public Use
  Company Number: A0694057A

PATIENT
  Age: 32 Year
  Sex: Female

DRUGS (3)
  1. ALLI [Suspect]
     Route: 048
  2. SINGULAIR [Concomitant]
  3. CELEXA [Concomitant]

REACTIONS (10)
  - ABDOMINAL PAIN UPPER [None]
  - ADHESION [None]
  - APPENDIX DISORDER [None]
  - CAROTENE DECREASED [None]
  - CHOLECYSTITIS [None]
  - DIARRHOEA [None]
  - DISCOMFORT [None]
  - DYSPEPSIA [None]
  - GALLBLADDER DISORDER [None]
  - PROCEDURAL PAIN [None]
